FAERS Safety Report 6669788-3 (Version None)
Quarter: 2010Q2

REPORT INFORMATION
  Report Type: 
  Country: None (occurrence: None)
  Receive Date: 20100402
  Receipt Date: 20100319
  Transmission Date: 20101027
  Serious: Yes (Other)
  Sender: FDA-Public Use
  Company Number: MPS1-1000312

PATIENT
  Age: 20 Year
  Sex: Female

DRUGS (1)
  1. ALDURAZYME        (LARONIDASE) CONCENTRATE FOR SOLUTION [Suspect]
     Indication: MUCOPOLYSACCHARIDOSIS I
     Dosage: 29 MG, 1XW, INTRAVENOUS
     Route: 042
     Dates: start: 20040901

REACTIONS (1)
  - PAIN IN EXTREMITY [None]
